FAERS Safety Report 8825325 (Version 4)
Quarter: 2014Q3

REPORT INFORMATION
  Report Type: Spontaneous
  Country: US (occurrence: US)
  Receive Date: 20121004
  Receipt Date: 20140730
  Transmission Date: 20150326
  Serious: Yes (Disabling, Other)
  Sender: FDA-Public Use
  Company Number: US-009507513-1210USA001068

PATIENT
  Sex: Female
  Weight: 77.98 kg

DRUGS (1)
  1. NUVARING [Suspect]
     Active Substance: ETHINYL ESTRADIOL\ETONOGESTREL
     Indication: CONTRACEPTION
     Dosage: UNK
     Route: 067
     Dates: start: 200909, end: 201009

REACTIONS (7)
  - Maternal exposure before pregnancy [Unknown]
  - Embolism arterial [Unknown]
  - Cerebrovascular accident [Not Recovered/Not Resolved]
  - Paralysis [Unknown]
  - Heart rate irregular [Unknown]
  - Thrombosis [Unknown]
  - Migraine [Unknown]

NARRATIVE: CASE EVENT DATE: 2010
